FAERS Safety Report 21337328 (Version 3)
Quarter: 2022Q4

REPORT INFORMATION
  Report Type: Spontaneous
  Country: CN (occurrence: CN)
  Receive Date: 20220915
  Receipt Date: 20221005
  Transmission Date: 20230113
  Serious: Yes (Hospitalization, Other)
  Sender: FDA-Public Use
  Company Number: CN-BAYER-2022A124763

PATIENT
  Age: 39 Year
  Sex: Female

DRUGS (3)
  1. AVELOX [Suspect]
     Active Substance: MOXIFLOXACIN HYDROCHLORIDE
     Indication: Asthma
     Dosage: 3 DF, QD
     Route: 048
     Dates: start: 20220806, end: 20220807
  2. AMBROXOL [Concomitant]
     Active Substance: AMBROXOL
     Indication: Asthma
  3. MONTELUKAST [Concomitant]
     Active Substance: MONTELUKAST SODIUM
     Indication: Asthma

REACTIONS (16)
  - Liver injury [Recovered/Resolved]
  - Cardiac discomfort [Recovering/Resolving]
  - Palpitations [Recovering/Resolving]
  - Dyspnoea [Not Recovered/Not Resolved]
  - Dizziness [Not Recovered/Not Resolved]
  - Hypoaesthesia [Not Recovered/Not Resolved]
  - Angiopathy [Recovering/Resolving]
  - Fatigue [Recovering/Resolving]
  - Incoherent [Recovering/Resolving]
  - Keratitis [Not Recovered/Not Resolved]
  - Iritis [Not Recovered/Not Resolved]
  - Creatinine renal clearance decreased [Not Recovered/Not Resolved]
  - Ocular hyperaemia [Not Recovered/Not Resolved]
  - Photophobia [Not Recovered/Not Resolved]
  - Intentional product use issue [None]
  - Off label use [None]

NARRATIVE: CASE EVENT DATE: 20220101
